FAERS Safety Report 9453990 (Version 2)
Quarter: 2013Q3

REPORT INFORMATION
  Report Type: Spontaneous
  Country: FR (occurrence: FR)
  Receive Date: 20130812
  Receipt Date: 20130911
  Transmission Date: 20140515
  Serious: Yes (Hospitalization)
  Sender: FDA-Public Use
  Company Number: FR-PFIZER INC-2013229787

PATIENT
  Age: 72 Year
  Sex: Male

DRUGS (6)
  1. TAZOCILLINE [Suspect]
     Indication: LUNG INFECTION
     Dosage: 1 DF, 3X/DAY
     Route: 042
     Dates: start: 20130531, end: 20130611
  2. APROVEL [Concomitant]
     Indication: HYPERTENSION
     Dosage: 300 MG, 1X/DAY
     Route: 048
  3. CORDARONE [Concomitant]
     Indication: ARRHYTHMIA
     Dosage: 200 MG, 1X/DAY
     Route: 048
  4. FLECAINE [Concomitant]
     Indication: ARRHYTHMIA
     Dosage: 100 MG, 1X/DAY
     Route: 048
  5. LASILIX [Concomitant]
     Indication: HYPERTENSION
     Dosage: 40 MG, 1X/DAY
     Route: 048
  6. LERCAN [Concomitant]
     Indication: HYPERTENSION
     Dosage: 10 MG, 1X/DAY
     Route: 048

REACTIONS (2)
  - Eosinophilia [Recovered/Resolved]
  - Renal failure acute [Recovering/Resolving]
